FAERS Safety Report 9224914 (Version 2)
Quarter: 2013Q2

REPORT INFORMATION
  Report Type: Report from Study
  Country: US (occurrence: US)
  Receive Date: 20130411
  Receipt Date: 20130531
  Transmission Date: 20140414
  Serious: Yes (Other)
  Sender: FDA-Public Use
  Company Number: US-SANOFI-AVENTIS-2013SA036528

PATIENT
  Age: 39 Year
  Sex: Female
  Weight: 63.27 kg

DRUGS (9)
  1. DOCETAXEL [Suspect]
     Indication: BREAST CANCER
     Route: 042
     Dates: start: 20121016
  2. DOCETAXEL [Suspect]
     Indication: BREAST CANCER
     Route: 042
  3. DOCETAXEL [Suspect]
     Indication: BREAST CANCER
     Route: 042
     Dates: start: 20130108
  4. TRASTUZUMAB EMTANSINE [Suspect]
     Indication: BREAST CANCER
     Route: 042
     Dates: start: 20121016
  5. TRASTUZUMAB EMTANSINE [Suspect]
     Indication: BREAST CANCER
     Route: 042
     Dates: start: 20130108
  6. NEULASTA [Concomitant]
     Dates: start: 20121017, end: 20130109
  7. LYRICA [Concomitant]
     Dates: start: 20130102, end: 20130315
  8. ZANTAC [Concomitant]
     Dates: start: 20130122
  9. VICODIN [Concomitant]
     Dates: start: 20121113

REACTIONS (1)
  - Dermatomyositis [Recovered/Resolved]
